FAERS Safety Report 6945803-4 (Version None)
Quarter: 2010Q3

REPORT INFORMATION
  Report Type: 
  Country: None (occurrence: None)
  Receive Date: 20100827
  Receipt Date: 20100812
  Transmission Date: 20110219
  Serious: Yes (Death, Hospitalization)
  Sender: FDA-Public Use
  Company Number: FR-GENENTECH-305446

PATIENT
  Sex: Female

DRUGS (16)
  1. RITUXIMAB [Suspect]
     Indication: BURKITT'S LYMPHOMA
     Dosage: UNK
     Route: 042
     Dates: start: 20100512, end: 20100512
  2. RITUXIMAB [Suspect]
     Dosage: UNK
     Route: 042
     Dates: start: 20100518, end: 20100518
  3. RITUXIMAB [Suspect]
     Dosage: UNK
     Route: 042
     Dates: start: 20100722, end: 20100722
  4. RITUXIMAB [Suspect]
     Dosage: UNK
     Route: 042
     Dates: start: 20100728, end: 20100728
  5. VINCRISTINE [Suspect]
     Indication: BURKITT'S LYMPHOMA
     Dosage: UNK
     Route: 042
     Dates: start: 20100512, end: 20100512
  6. VINCRISTINE [Suspect]
     Dosage: UNK
     Route: 042
     Dates: start: 20100518, end: 20100518
  7. VINCRISTINE [Suspect]
     Dosage: UNK
     Route: 042
     Dates: start: 20100723, end: 20100723
  8. METHOTREXATE [Suspect]
     Indication: BURKITT'S LYMPHOMA
     Dosage: UNK
     Route: 042
     Dates: start: 20100513
  9. METHOTREXATE [Suspect]
     Dosage: UNK
     Route: 042
     Dates: start: 20100723
  10. DOXORUBICIN HCL [Suspect]
     Indication: BURKITT'S LYMPHOMA
     Dosage: 108 MG, UNK
     Route: 042
     Dates: start: 20100514, end: 20100514
  11. DOXORUBICIN HCL [Suspect]
     Dosage: 108 MG, UNK
     Route: 042
     Dates: start: 20100724, end: 20100724
  12. DOXORUBICIN HCL [Suspect]
     Dosage: 108 MG, UNK
     Route: 042
     Dates: start: 20100728, end: 20100728
  13. CYCLOPHOSPHAMIDE [Suspect]
     Indication: BURKITT'S LYMPHOMA
     Dosage: UNK
     Route: 042
     Dates: start: 20100514, end: 20100516
  14. CYCLOPHOSPHAMIDE [Suspect]
     Dosage: UNK
     Route: 042
     Dates: start: 20100724, end: 20100726
  15. PREDNISOLONE [Suspect]
     Indication: BURKITT'S LYMPHOMA
     Dosage: UNK
     Route: 048
     Dates: start: 20100513, end: 20100517
  16. PREDNISOLONE [Suspect]
     Dosage: UNK
     Route: 048
     Dates: start: 20100723, end: 20100727

REACTIONS (4)
  - FEBRILE BONE MARROW APLASIA [None]
  - GENERAL PHYSICAL HEALTH DETERIORATION [None]
  - MUCOSAL INFLAMMATION [None]
  - SEPTIC SHOCK [None]
